FAERS Safety Report 8082716-1 (Version None)
Quarter: 2012Q1

REPORT INFORMATION
  Report Type: 
  Country: None (occurrence: None)
  Receive Date: 20120127
  Receipt Date: 20110301
  Transmission Date: 20120608
  Serious: No
  Sender: FDA-Public Use
  Company Number: US-ABBOTT-11P-163-0708331-00

PATIENT
  Age: 66 Year
  Sex: Male

DRUGS (15)
  1. ACIDOPHILUS [Concomitant]
     Indication: PRODUCT USED FOR UNKNOWN INDICATION
  2. ASPIRIN [Concomitant]
     Indication: PRODUCT USED FOR UNKNOWN INDICATION
     Route: 048
  3. FLUTICASONE PROPIONATE [Concomitant]
     Indication: PSORIASIS
  4. VITAMIN D [Concomitant]
     Indication: PRODUCT USED FOR UNKNOWN INDICATION
  5. CALCIUM [Concomitant]
     Indication: SUPPLEMENTATION THERAPY
  6. B-50 COMPLEX [Concomitant]
     Indication: PRODUCT USED FOR UNKNOWN INDICATION
  7. MELOXICAM [Concomitant]
     Indication: ARTHRITIS
  8. FLUOCINONIDE [Concomitant]
     Indication: PSORIASIS
  9. ASCORBIC ACID [Concomitant]
     Indication: PRODUCT USED FOR UNKNOWN INDICATION
  10. COLLAGIM+C [Concomitant]
     Indication: PRODUCT USED FOR UNKNOWN INDICATION
  11. SIMVASTATIN [Concomitant]
     Indication: BLOOD CHOLESTEROL INCREASED
  12. CRANBERRY [Concomitant]
     Indication: PRODUCT USED FOR UNKNOWN INDICATION
     Dosage: DAILY
     Route: 048
  13. HUMIRA [Suspect]
     Indication: PSORIATIC ARTHROPATHY
     Dates: start: 20101001
  14. LISINOPRIL [Concomitant]
     Indication: HYPERTENSION
  15. MULTI-VITAMIN [Concomitant]
     Indication: PRODUCT USED FOR UNKNOWN INDICATION
     Route: 048

REACTIONS (2)
  - PARAESTHESIA [None]
  - HYPOAESTHESIA [None]
